FAERS Safety Report 23421300 (Version 1)
Quarter: 2024Q1

REPORT INFORMATION
  Report Type: Spontaneous
  Country: GB (occurrence: GB)
  Receive Date: 20240119
  Receipt Date: 20240119
  Transmission Date: 20240410
  Serious: Yes (Hospitalization)
  Sender: FDA-Public Use
  Company Number: GB-MYLANLABS-2024M1004922

PATIENT
  Age: 5 Month
  Sex: Male

DRUGS (1)
  1. BETAMETHASONE [Suspect]
     Active Substance: BETAMETHASONE\BETAMETHASONE DIPROPIONATE
     Indication: Pyriform aperture stenosis
     Dosage: UNK, BID (RECEIVED INTRANASAL BETAMETHASONE 1 DROP TO EACH NOSTRIL TWICE DAILY FROM DAY 5 OF LIFE)
     Route: 045

REACTIONS (4)
  - Adrenal suppression [Recovered/Resolved]
  - Cushingoid [Unknown]
  - Adrenal insufficiency [Unknown]
  - Off label use [Unknown]
